FAERS Safety Report 8812628 (Version 2)
Quarter: 2012Q4

REPORT INFORMATION
  Report Type: 
  Country: US (occurrence: US)
  Receive Date: 20120927
  Receipt Date: 20121112
  Transmission Date: 20130627
  Serious: Yes (Other)
  Sender: FDA-Public Use
  Company Number: PHEH2012US018631

PATIENT
  Sex: Female

DRUGS (2)
  1. DIOVAN HCT [Suspect]
     Dosage: 1 DF(160/25mg), daily
  2. AFFECTOR [Concomitant]
     Dosage: 150 mg, daily

REACTIONS (3)
  - Cerebral haemorrhage [Unknown]
  - Arthritis [Unknown]
  - Product packaging issue [Unknown]
